FAERS Safety Report 4802616-7 (Version None)
Quarter: 2005Q4

REPORT INFORMATION
  Report Type: 
  Country: None (occurrence: None)
  Receive Date: 20051014
  Receipt Date: 20050315
  Transmission Date: 20060501
  Serious: Yes (Other)
  Sender: FDA-Public Use
  Company Number: 2005046020

PATIENT
  Age: 33 Year
  Sex: Female
  Weight: 90.7194 kg

DRUGS (8)
  1. NEURONTIN [Suspect]
     Indication: PLANTAR FASCIITIS
     Dosage: 200 MG (200 MG, 1 IN 1 D) ORAL
     Route: 048
     Dates: start: 20050308
  2. CILEST (ETHINYLESTRADIOL, NORGESTIMATE) [Concomitant]
  3. FEXOAFENADINE HYDROCHLORIDE [Concomitant]
  4. MELOXICAM [Concomitant]
  5. METFORMIN HYDROCHLORIDE [Concomitant]
  6. OMEPRAZOLE [Concomitant]
  7. ROSUVASTATIN [Concomitant]
  8. ZOLPIDEM TARTRATE [Concomitant]

REACTIONS (5)
  - HYPOAESTHESIA [None]
  - NECK MASS [None]
  - NECK PAIN [None]
  - PARAESTHESIA [None]
  - SWELLING [None]
